FAERS Safety Report 26163243 (Version 2)
Quarter: 2025Q4

REPORT INFORMATION
  Report Type: Spontaneous
  Country: EU (occurrence: EU)
  Receive Date: 20251216
  Receipt Date: 20251218
  Transmission Date: 20260117
  Serious: Yes (Hospitalization, Other)
  Sender: MYLAN
  Company Number: EU-MYLANLABS-2025M1043314

PATIENT
  Sex: Male
  Weight: 56.3 kg

DRUGS (1)
  1. CLOZARIL [Suspect]
     Active Substance: CLOZAPINE
     Indication: Schizophrenia
     Dosage: UNK, BID (200MG MANE, 250MG NOCTE)
     Route: 061
     Dates: start: 20181129

REACTIONS (4)
  - Weight decreased [Unknown]
  - Neutropenia [Recovered/Resolved]
  - Neutrophil toxic granulation present [Unknown]
  - Neutrophil Pelger-Huet anomaly present [Unknown]
